FAERS Safety Report 20478816 (Version 3)
Quarter: 2022Q4

REPORT INFORMATION
  Report Type: Spontaneous
  Country: US (occurrence: US)
  Receive Date: 20220216
  Receipt Date: 20221208
  Transmission Date: 20230113
  Serious: Yes (Hospitalization)
  Sender: FDA-Public Use
  Company Number: US-SA-SAC20220209001421

PATIENT
  Age: 15 Year
  Sex: Female

DRUGS (1)
  1. FABRAZYME [Suspect]
     Active Substance: AGALSIDASE BETA
     Indication: Fabry^s disease
     Dosage: 80 MG, QOW
     Route: 041
     Dates: start: 202009

REACTIONS (2)
  - Hospitalisation [Unknown]
  - Pyrexia [Unknown]

NARRATIVE: CASE EVENT DATE: 20220101
